FAERS Safety Report 24579042 (Version 2)
Quarter: 2024Q4

REPORT INFORMATION
  Report Type: Report from Study
  Country: US (occurrence: US)
  Receive Date: 20241105
  Receipt Date: 20241201
  Transmission Date: 20250114
  Serious: Yes (Other)
  Sender: NOVARTIS
  Company Number: US-002147023-NVSC2024US202133

PATIENT
  Sex: Male

DRUGS (1)
  1. KESIMPTA [Suspect]
     Active Substance: OFATUMUMAB
     Indication: Multiple sclerosis
     Dosage: 20 MG, QMO
     Route: 058
     Dates: start: 20241007

REACTIONS (6)
  - Mental impairment [Unknown]
  - Influenza like illness [Unknown]
  - Throat irritation [Unknown]
  - Fatigue [Unknown]
  - Absence of immediate treatment response [Unknown]
  - Depressed mood [Unknown]
